FAERS Safety Report 7406143-2 (Version None)
Quarter: 2011Q2

REPORT INFORMATION
  Report Type: 
  Country: None (occurrence: None)
  Receive Date: 20110405
  Receipt Date: 20110405
  Transmission Date: 20111010
  Serious: Yes (Life-Threatening, Other)
  Sender: FDA-Public Use
  Company Number: None

PATIENT
  Sex: Female
  Weight: 46.2669 kg

DRUGS (2)
  1. BUPROPION HCL [Suspect]
     Indication: DEPRESSION
     Dosage: 150MG Q AM PO
     Route: 048
     Dates: start: 20110103, end: 20110228
  2. VENLAFAXINE HCL [Concomitant]

REACTIONS (4)
  - SUICIDE ATTEMPT [None]
  - PRODUCT SUBSTITUTION ISSUE [None]
  - DEPRESSION [None]
  - CONDITION AGGRAVATED [None]
